FAERS Safety Report 4453202-2 (Version None)
Quarter: 2004Q3

REPORT INFORMATION
  Report Type: 
  Country: None (occurrence: None)
  Receive Date: 20040901
  Receipt Date: 20040601
  Transmission Date: 20050211
  Serious: Yes (Other)
  Sender: FDA-Public Use
  Company Number: 139045USA

PATIENT
  Age: 18 Year
  Sex: Female
  Weight: 76 kg

DRUGS (2)
  1. IFOSFAMIDE [Suspect]
     Indication: ACUTE LYMPHOCYTIC LEUKAEMIA
     Dosage: 1800 MG/ML QD INTRAVENOUS (NOS)
     Route: 042
     Dates: start: 20040519, end: 20040523
  2. ETOPOSIDE [Concomitant]

REACTIONS (4)
  - CONFUSIONAL STATE [None]
  - FEELING ABNORMAL [None]
  - FEELING DRUNK [None]
  - NEUROTOXICITY [None]
